FAERS Safety Report 16696514 (Version 1)
Quarter: 2019Q3

REPORT INFORMATION
  Report Type: Spontaneous
  Country: GB (occurrence: GB)
  Receive Date: 20190813
  Receipt Date: 20190813
  Transmission Date: 20191004
  Serious: Yes (Life-Threatening, Hospitalization)
  Sender: FDA-Public Use
  Company Number: GB-MYLANLABS-2019M1074754

PATIENT
  Age: 31 Year
  Sex: Male
  Weight: 112 kg

DRUGS (3)
  1. LEVOTHYROXINE SODIUM. [Concomitant]
     Active Substance: LEVOTHYROXINE SODIUM
     Dosage: UNK
  2. LAMOTRIGINE. [Suspect]
     Active Substance: LAMOTRIGINE
     Indication: SEIZURE
     Dosage: 25 MILLIGRAM, QD
     Route: 048
     Dates: start: 20190126, end: 20190208
  3. LEVETIRACETAM. [Concomitant]
     Active Substance: LEVETIRACETAM
     Dosage: UNK

REACTIONS (12)
  - Peripheral circulatory failure [Unknown]
  - Hypertriglyceridaemia [Unknown]
  - Tachycardia [Unknown]
  - Thrombocytopenia [Unknown]
  - Haemophagocytic lymphohistiocytosis [Not Recovered/Not Resolved]
  - Anaemia [Unknown]
  - Rash [Unknown]
  - Pallor [Unknown]
  - Hypotension [Unknown]
  - Pyrexia [Unknown]
  - Shock [Unknown]
  - Tachypnoea [Unknown]

NARRATIVE: CASE EVENT DATE: 20190208
